FAERS Safety Report 23354137 (Version 1)
Quarter: 2024Q1

REPORT INFORMATION
  Report Type: Spontaneous
  Country: SE (occurrence: SE)
  Receive Date: 20240101
  Receipt Date: 20240101
  Transmission Date: 20240409
  Serious: Yes (Hospitalization)
  Sender: FDA-Public Use
  Company Number: None

PATIENT
  Age: 26 Year
  Sex: Female
  Weight: 83 kg

DRUGS (1)
  1. LISDEXAMFETAMINE DIMESYLATE [Suspect]
     Active Substance: LISDEXAMFETAMINE DIMESYLATE
     Indication: Attention deficit hyperactivity disorder
     Dosage: 50 MILLIGRAM, QD
     Route: 048
     Dates: start: 20230904, end: 20231215

REACTIONS (8)
  - Presyncope [Recovered/Resolved]
  - Hypoaesthesia [Recovering/Resolving]
  - Syncope [Recovering/Resolving]
  - Muscle tightness [Recovering/Resolving]
  - Orthostatic hypotension [Recovering/Resolving]
  - Autonomic nervous system imbalance [Recovering/Resolving]
  - Hemihypoaesthesia [Not Recovered/Not Resolved]
  - Hypotension [Recovering/Resolving]

NARRATIVE: CASE EVENT DATE: 20230101
